FAERS Safety Report 15594282 (Version 3)
Quarter: 2019Q3

REPORT INFORMATION
  Report Type: Spontaneous
  Country: US (occurrence: US)
  Receive Date: 20181106
  Receipt Date: 20190916
  Transmission Date: 20191004
  Serious: No
  Sender: FDA-Public Use
  Company Number: US-PFIZER INC-2018452920

PATIENT
  Age: 56 Year
  Sex: Female

DRUGS (1)
  1. LYRICA [Suspect]
     Active Substance: PREGABALIN
     Dosage: 300 MG, 1X/DAY, (TAKE 3 TABS AT NIGHT)
     Route: 048

REACTIONS (4)
  - Product prescribing error [Unknown]
  - Therapeutic product effect incomplete [Unknown]
  - Pain [Unknown]
  - Gait disturbance [Unknown]
